FAERS Safety Report 7571810-7 (Version None)
Quarter: 2011Q2

REPORT INFORMATION
  Report Type: 
  Country: None (occurrence: None)
  Receive Date: 20110624
  Receipt Date: 20110617
  Transmission Date: 20111010
  Serious: Yes (Death, Hospitalization, Other)
  Sender: FDA-Public Use
  Company Number: FR-GENZYME-CAMP-1001705

PATIENT
  Sex: Female
  Weight: 70 kg

DRUGS (1)
  1. CAMPATH [Suspect]
     Indication: CHRONIC LYMPHOCYTIC LEUKAEMIA
     Dosage: 30 MG, X3/W
     Route: 058
     Dates: start: 20100818, end: 20101110

REACTIONS (11)
  - CYTOLYTIC HEPATITIS [None]
  - CHOLESTASIS [None]
  - INFECTION [None]
  - NEUROLOGICAL DECOMPENSATION [None]
  - MULTI-ORGAN FAILURE [None]
  - RENAL FAILURE [None]
  - PANCYTOPENIA [None]
  - PYREXIA [None]
  - DIARRHOEA [None]
  - HISTIOCYTOSIS HAEMATOPHAGIC [None]
  - GENERAL PHYSICAL HEALTH DETERIORATION [None]
